FAERS Safety Report 18478016 (Version 1)
Quarter: 2020Q4

REPORT INFORMATION
  Report Type: Spontaneous
  Country: CN (occurrence: CN)
  Receive Date: 20201108
  Receipt Date: 20201108
  Transmission Date: 20210114
  Serious: Yes (Other)
  Sender: FDA-Public Use
  Company Number: ALC2020CN008793

PATIENT
  Age: 24 Year
  Sex: Female

DRUGS (3)
  1. FLUORESCITE [Suspect]
     Active Substance: FLUORESCEIN SODIUM
     Indication: FLUORESCENCE ANGIOGRAM
     Dosage: 3.000000 ML
     Route: 042
     Dates: start: 20200528, end: 20200528
  2. INDOCYANINE GREEN. [Suspect]
     Active Substance: INDOCYANINE GREEN
     Indication: ANGIOGRAM
     Dosage: ONCE AS NEEDED, ONE VIAL EACH TIME
     Route: 065
  3. STERILE WATER [Suspect]
     Active Substance: WATER
     Indication: PRODUCT USED FOR UNKNOWN INDICATION
     Dosage: ONCE AS NEEDED,ONE VIAL EACH TIME
     Route: 065

REACTIONS (1)
  - Iridocyclitis [Recovered/Resolved]

NARRATIVE: CASE EVENT DATE: 20200528
